FAERS Safety Report 8044508-9 (Version None)
Quarter: 2012Q1

REPORT INFORMATION
  Report Type: 
  Country: None (occurrence: None)
  Receive Date: 20120113
  Receipt Date: 20120110
  Transmission Date: 20120608
  Serious: Yes (Other)
  Sender: FDA-Public Use
  Company Number: US-JNJFOC-20111207705

PATIENT
  Age: 74 Year
  Sex: Female
  Weight: 60.78 kg

DRUGS (2)
  1. ROGAINE (FOR WOMEN) [Suspect]
     Indication: ALOPECIA
     Dosage: DOSE UP TO THE DROPPER LINE
     Route: 061
     Dates: start: 20111212, end: 20111214
  2. ROGAINE (FOR WOMEN) [Suspect]
     Route: 061

REACTIONS (2)
  - HYPERSENSITIVITY [None]
  - HEADACHE [None]
